FAERS Safety Report 14748081 (Version 1)
Quarter: 2018Q2

REPORT INFORMATION
  Report Type: Spontaneous
  Country: JP (occurrence: JP)
  Receive Date: 20180411
  Receipt Date: 20180411
  Transmission Date: 20180711
  Serious: Yes (Death)
  Sender: FDA-Public Use
  Company Number: PHHY2018JP056801

PATIENT
  Age: 63 Year
  Sex: Female

DRUGS (2)
  1. DOCETAXEL. [Suspect]
     Active Substance: DOCETAXEL
     Indication: UTERINE CANCER
     Dosage: 70 MG/M2, TRIWEEKLY
     Route: 065
  2. CARBOPLATIN. [Suspect]
     Active Substance: CARBOPLATIN
     Indication: UTERINE CANCER
     Dosage: TRIWEEKLY
     Route: 065

REACTIONS (7)
  - Obstructive shock [Fatal]
  - Product use in unapproved indication [Unknown]
  - Renal injury [Fatal]
  - Pulmonary embolism [Fatal]
  - Metabolic acidosis [Fatal]
  - Tumour lysis syndrome [Fatal]
  - Hyperkalaemia [Fatal]
